FAERS Safety Report 16347588 (Version 1)
Quarter: 2019Q3

REPORT INFORMATION
  Report Type: Spontaneous
  Country: US (occurrence: US)
  Receive Date: 20190522
  Receipt Date: 20190522
  Transmission Date: 20191004
  Serious: Yes (Death)
  Sender: FDA-Public Use
  Company Number: None

PATIENT
  Age: 7 Year
  Sex: Male
  Weight: 35 kg

DRUGS (1)
  1. KYMRIAH [Suspect]
     Active Substance: TISAGENLECLEUCEL
     Indication: ACUTE LYMPHOCYTIC LEUKAEMIA
     Dosage: ?          OTHER FREQUENCY:ONCE;?
     Route: 042
     Dates: start: 20190429, end: 20190429

REACTIONS (19)
  - Cardio-respiratory arrest [None]
  - Renal replacement therapy [None]
  - Haemodynamic instability [None]
  - Compartment syndrome [None]
  - Lactic acidosis [None]
  - Coagulopathy [None]
  - Shock haemorrhagic [None]
  - Febrile neutropenia [None]
  - Pulmonary oedema [None]
  - Fluid overload [None]
  - Cerebral infarction [None]
  - Cytokine release syndrome [None]
  - Lung assist device therapy [None]
  - Shock [None]
  - Intraventricular haemorrhage [None]
  - Multiple organ dysfunction syndrome [None]
  - Cerebral haemorrhage [None]
  - Pseudomonal bacteraemia [None]
  - Capillary leak syndrome [None]

NARRATIVE: CASE EVENT DATE: 20190519
